FAERS Safety Report 9721953 (Version 1)
Quarter: 2013Q4

REPORT INFORMATION
  Report Type: Spontaneous
  Country: SE (occurrence: SE)
  Receive Date: 20131202
  Receipt Date: 20131202
  Transmission Date: 20140711
  Serious: Yes (Hospitalization, Other)
  Sender: FDA-Public Use
  Company Number: SE-PFIZER INC-2013342418

PATIENT
  Age: 43 Year
  Sex: Female
  Weight: 62 kg

DRUGS (5)
  1. RAMIPRIL [Suspect]
     Dosage: 10 MG, 2X/DAY
     Route: 048
     Dates: start: 201304
  2. METOPROLOL TARTRATE [Suspect]
     Indication: MYOCARDIAL INFARCTION
     Dosage: 50 MG, 2X/DAY
     Route: 065
     Dates: start: 201304
  3. BRILINTA [Suspect]
     Indication: MYOCARDIAL INFARCTION
     Dosage: UNK, 2X/DAY
     Route: 048
     Dates: start: 201304
  4. ATORVASTATIN [Concomitant]
     Dosage: UNK
     Dates: end: 2013
  5. THROMBIN [Concomitant]
     Dosage: UNK
     Dates: start: 201304

REACTIONS (7)
  - Loss of consciousness [Recovered/Resolved]
  - Tremor [Recovered/Resolved]
  - Blood pressure decreased [Recovered/Resolved]
  - Nausea [Recovered/Resolved]
  - Back pain [Recovered/Resolved]
  - Musculoskeletal pain [Recovered/Resolved]
  - Dizziness [Recovered/Resolved]
